FAERS Safety Report 15145392 (Version 2)
Quarter: 2018Q3

REPORT INFORMATION
  Report Type: Other
  Country: US (occurrence: US)
  Receive Date: 20180713
  Receipt Date: 20180831
  Transmission Date: 20181010
  Serious: Yes (Hospitalization)
  Sender: FDA-Public Use
  Company Number: US-INTERCEPT-PMOCA2018000614

PATIENT

DRUGS (1)
  1. OCALIVA [Suspect]
     Active Substance: OBETICHOLIC ACID
     Indication: PRIMARY BILIARY CHOLANGITIS
     Dosage: 5 MG, QD
     Route: 065
     Dates: start: 20170206, end: 201712

REACTIONS (7)
  - Gastrooesophageal reflux disease [Unknown]
  - Liver function test abnormal [Unknown]
  - Hypo HDL cholesterolaemia [Recovering/Resolving]
  - Hepatic encephalopathy [Unknown]
  - Pruritus [Recovered/Resolved]
  - Haematochezia [Unknown]
  - Varices oesophageal [Unknown]

NARRATIVE: CASE EVENT DATE: 20180209
